FAERS Safety Report 4876008-9 (Version None)
Quarter: 2006Q1

REPORT INFORMATION
  Report Type: 
  Country: None (occurrence: None)
  Receive Date: 20060109
  Receipt Date: 20051228
  Transmission Date: 20060701
  Serious: Yes (Hospitalization)
  Sender: FDA-Public Use
  Company Number: FR-SANOFI-SYNTHELABO-A02200503460

PATIENT
  Age: 81 Year
  Sex: Female
  Weight: 60 kg

DRUGS (8)
  1. MEPRONIZINE [Interacting]
     Indication: DRUG USE FOR UNKNOWN INDICATION
     Route: 048
     Dates: end: 20051020
  2. ZOLPIDEM TARTRATE [Suspect]
     Indication: DRUG USE FOR UNKNOWN INDICATION
     Route: 048
     Dates: end: 20051020
  3. XANAX [Interacting]
     Indication: DRUG USE FOR UNKNOWN INDICATION
     Route: 048
     Dates: end: 20051020
  4. ALDACTONE [Concomitant]
     Indication: DRUG USE FOR UNKNOWN INDICATION
     Route: 048
  5. PREVISCAN [Concomitant]
     Indication: DRUG USE FOR UNKNOWN INDICATION
     Dosage: UNK
     Route: 048
  6. AMLOR [Concomitant]
     Indication: DRUG USE FOR UNKNOWN INDICATION
     Route: 048
  7. LASILIX [Concomitant]
     Indication: DRUG USE FOR UNKNOWN INDICATION
     Route: 048
  8. DISCOTRINE [Concomitant]
     Indication: DRUG USE FOR UNKNOWN INDICATION
     Route: 062

REACTIONS (10)
  - ACUTE RESPIRATORY FAILURE [None]
  - BRONCHITIS [None]
  - DRUG INTERACTION [None]
  - FALL [None]
  - HYPOTENSION [None]
  - INFLAMMATION [None]
  - LEUKOCYTOSIS [None]
  - MALAISE [None]
  - RIGHT VENTRICULAR FAILURE [None]
  - SUPERINFECTION LUNG [None]
